FAERS Safety Report 10477639 (Version 1)
Quarter: 2014Q3

REPORT INFORMATION
  Report Type: Spontaneous
  Country: US (occurrence: None)
  Receive Date: 20140925
  Receipt Date: 20140925
  Transmission Date: 20150326
  Serious: Yes (Hospitalization)
  Sender: FDA-Public Use
  Company Number: None

PATIENT
  Age: 1 Year
  Sex: Male
  Weight: 14.3 kg

DRUGS (1)
  1. CYCLOPHOSPHAMIDE. [Suspect]
     Active Substance: CYCLOPHOSPHAMIDE

REACTIONS (9)
  - Renal failure acute [None]
  - Cardio-respiratory arrest [None]
  - Anaemia [None]
  - Respiratory failure [None]
  - Shock [None]
  - Pancytopenia [None]
  - Acidosis [None]
  - Hyperkalaemia [None]
  - Transaminases increased [None]

NARRATIVE: CASE EVENT DATE: 20140916
